FAERS Safety Report 6259432-1 (Version None)
Quarter: 2009Q3

REPORT INFORMATION
  Report Type: 
  Country: None (occurrence: None)
  Receive Date: 20090708
  Receipt Date: 20080108
  Transmission Date: 20100115
  Serious: Yes (Other)
  Sender: FDA-Public Use
  Company Number: US-ASTRAZENECA-2006UW11538

PATIENT
  Age: 672 Month
  Sex: Female
  Weight: 80.7 kg

DRUGS (14)
  1. SEROQUEL [Suspect]
     Indication: DEPRESSION
     Route: 048
     Dates: start: 20040301, end: 20040601
  2. SEROQUEL [Suspect]
     Indication: SCHIZOPHRENIA
     Route: 048
     Dates: start: 20040301, end: 20040601
  3. SEROQUEL [Suspect]
     Dosage: 300 MG TO 600 MG DAILY
     Route: 048
     Dates: start: 20040618
  4. SEROQUEL [Suspect]
     Dosage: 300 MG TO 600 MG DAILY
     Route: 048
     Dates: start: 20040618
  5. HALDOL [Concomitant]
     Route: 048
     Dates: start: 20020901
  6. RISPERDAL [Concomitant]
     Route: 048
     Dates: start: 20050701
  7. ZYPREXA [Concomitant]
     Route: 048
  8. NORVASC [Concomitant]
     Indication: BLOOD PRESSURE
     Route: 048
  9. ENALAPRIL [Concomitant]
     Indication: BLOOD PRESSURE
     Route: 048
  10. ALBUTEROL [Concomitant]
  11. CODEINE [Concomitant]
     Indication: SCIATICA
     Route: 048
  12. TEMAZEPAM [Concomitant]
     Indication: INSOMNIA
  13. TEMAZEPAM [Concomitant]
     Indication: ANXIETY
  14. LORAZEPAM [Concomitant]
     Indication: AGITATION
     Route: 048

REACTIONS (3)
  - HYPERGLYCAEMIA [None]
  - MULTIPLE FRACTURES [None]
  - OPEN WOUND [None]
